FAERS Safety Report 4764564-0 (Version None)
Quarter: 2005Q3

REPORT INFORMATION
  Report Type: 
  Country: None (occurrence: None)
  Receive Date: 20050906
  Receipt Date: 20050523
  Transmission Date: 20060218
  Serious: No
  Sender: FDA-Public Use
  Company Number: 2005S1000178

PATIENT
  Age: 12 Year
  Sex: Male
  Weight: 60.782 kg

DRUGS (4)
  1. TEV-TROPIN [Suspect]
     Indication: GROWTH HORMONE DEFICIENCY
     Dosage: 107 MG;QD; SC
     Route: 058
     Dates: start: 20050519
  2. FLONASE [Concomitant]
  3. ZYRTEC [Concomitant]
  4. AMOXIL [Concomitant]

REACTIONS (2)
  - NON-CARDIAC CHEST PAIN [None]
  - PAIN [None]
